FAERS Safety Report 6929830-9 (Version None)
Quarter: 2010Q3

REPORT INFORMATION
  Report Type: 
  Country: None (occurrence: None)
  Receive Date: 20100813
  Receipt Date: 20100730
  Transmission Date: 20110219
  Serious: Yes (Hospitalization, Other)
  Sender: FDA-Public Use
  Company Number: 2010003263

PATIENT
  Age: 77 Year
  Sex: Male

DRUGS (12)
  1. ERLOTINIB HYDROCHLORIDE [Suspect]
     Indication: LUNG SQUAMOUS CELL CARCINOMA STAGE UNSPECIFIED
     Dosage: (150 MG, QD), ORAL
     Route: 048
     Dates: start: 20090307, end: 20090508
  2. AMLODIPINE BESYLATE [Concomitant]
  3. METFORMIN HYDROCHLORIDE [Concomitant]
  4. KINEDAK (EPALRESTAT) [Concomitant]
  5. MUCOSOLVAN (AMBROXOL HYDROCHLORIDE) [Concomitant]
  6. HUSCODE (HUSCODE) [Concomitant]
  7. MAGNESIUM OXIDE (MAGNESIUM OXIDE) [Concomitant]
  8. LENDORM [Concomitant]
  9. HIBON (RIBOFLAVIN TETRABUTYRATE) [Concomitant]
  10. PYDOXAL (PYRIDOXAL PHOSPHATE) [Concomitant]
  11. KARY UNI (PIRENOXINE) [Concomitant]
  12. LECICARBON (LECICARBON) [Concomitant]

REACTIONS (4)
  - ANAEMIA [None]
  - ATRIAL FIBRILLATION [None]
  - DECREASED APPETITE [None]
  - VENTRICULAR EXTRASYSTOLES [None]
